FAERS Safety Report 9739238 (Version 1)
Quarter: 2013Q4

REPORT INFORMATION
  Report Type: Spontaneous
  Country: JP (occurrence: JP)
  Receive Date: 20131209
  Receipt Date: 20131209
  Transmission Date: 20140711
  Serious: Yes (Hospitalization)
  Sender: FDA-Public Use
  Company Number: JP-PFIZER INC-2013347078

PATIENT
  Age: 74 Year
  Sex: Male

DRUGS (5)
  1. IRINOTECAN HCL [Suspect]
     Indication: RECTAL CANCER
     Dosage: 150 MG/M2, CYCLIC, FOR 1.5 HR
  2. LEVOLEUCOVORIN CALCIUM [Suspect]
     Indication: RECTAL CANCER
     Dosage: 200 MG/M2, CYCLIC, FOR 2 HR
  3. FLUOROURACIL [Suspect]
     Indication: RECTAL CANCER
     Dosage: 400 MG/M2, CYCLIC
     Route: 040
  4. FLUOROURACIL [Suspect]
     Dosage: 2400 MG/M2, CYCLIC, FOR 46 HR
     Route: 041
  5. BEVACIZUMAB [Suspect]
     Indication: RECTAL CANCER
     Dosage: 10 MG/KG, CYCLIC

REACTIONS (1)
  - Hepatitis B [Unknown]
